FAERS Safety Report 9374031 (Version 1)
Quarter: 2013Q2

REPORT INFORMATION
  Report Type: Spontaneous
  Country: US (occurrence: US)
  Receive Date: 20130628
  Receipt Date: 20130628
  Transmission Date: 20140414
  Serious: Yes (Hospitalization)
  Sender: FDA-Public Use
  Company Number: US-ACCORD-018277

PATIENT
  Age: 73 Year
  Sex: Female

DRUGS (10)
  1. MULTIVITAMIN [Concomitant]
  2. CALCITONIN [Concomitant]
  3. LEVOTHYROXINE [Concomitant]
  4. WARFARIN [Concomitant]
  5. FISH OIL [Concomitant]
  6. CALCIUM [Concomitant]
  7. MITOMYCIN [Suspect]
     Indication: ANAL CANCER
     Dosage: TOTAL DOSE OF 32.5MG/M^2
  8. FLUOROURACIL [Concomitant]
     Indication: ANAL CANCER
  9. VITAMIN D [Concomitant]
  10. METOPROLOL [Concomitant]

REACTIONS (3)
  - Thrombotic thrombocytopenic purpura [Recovered/Resolved]
  - Haemolytic uraemic syndrome [Recovered/Resolved]
  - Off label use [Unknown]
